FAERS Safety Report 18229209 (Version 4)
Quarter: 2020Q4

REPORT INFORMATION
  Report Type: Spontaneous
  Country: DE (occurrence: DE)
  Receive Date: 20200903
  Receipt Date: 20201221
  Transmission Date: 20210113
  Serious: Yes (Hospitalization)
  Sender: FDA-Public Use
  Company Number: DE-AMGEN-DEUSP2020139845

PATIENT
  Sex: Male

DRUGS (21)
  1. PEGFILGRASTIM [Suspect]
     Active Substance: PEGFILGRASTIM
     Indication: B-CELL LYMPHOMA
     Dosage: 6 MILLIGRAM, 1 XFOR 36 DAY(S)
     Route: 058
     Dates: start: 20180923, end: 20181028
  2. DOXORUBICINE [DOXORUBICIN] [Suspect]
     Active Substance: DOXORUBICIN
     Indication: B-CELL LYMPHOMA
     Dosage: 50 MILLIGRAM, 1X FOR 36 DAY(S)
     Route: 042
     Dates: start: 20180918, end: 20181023
  3. ENOXAPARIN SODIUM. [Concomitant]
     Active Substance: ENOXAPARIN SODIUM
     Indication: EMBOLISM
     Dosage: 100 MILLIGRAM/MILLILITER, 0.7 ML
     Route: 058
     Dates: start: 20181006
  4. VALGANCICLOVIR. [Concomitant]
     Active Substance: VALGANCICLOVIR
     Indication: CYTOMEGALOVIRUS INFECTION
     Dosage: 450 MILLIGRAM, QID FOR 6 DAYS
     Route: 048
     Dates: start: 20181006, end: 20181011
  5. LEVOTHYROXINE SODIUM. [Concomitant]
     Active Substance: LEVOTHYROXINE SODIUM
     Indication: HYPOTHYROIDISM
     Dosage: 25 MICROGRAM, QD FOR 1 DAY
     Route: 048
     Dates: start: 20181006, end: 20181006
  6. PARACETAMOL [Concomitant]
     Active Substance: ACETAMINOPHEN
     Indication: PYREXIA
     Dosage: 500 MILLIGRAM, BID FOR 1 DAY
     Route: 048
     Dates: start: 20181009, end: 20181009
  7. GRANISETRON [Concomitant]
     Active Substance: GRANISETRON
     Indication: NAUSEA
     Dosage: 3 MILLIGRAM, QD FOR 2 DAYS
     Route: 042
     Dates: start: 20181010, end: 20181011
  8. VINCRISTINE [VINCRISTINE SULFATE] [Suspect]
     Active Substance: VINCRISTINE SULFATE
     Indication: B-CELL LYMPHOMA
     Dosage: 3.21MILLIGRAM/3.01 MILLIGRAM, 3X FOR 36 DAY(S)
     Route: 042
     Dates: start: 20180920, end: 20181025
  9. RITUXIMAB. [Suspect]
     Active Substance: RITUXIMAB
     Indication: B-CELL LYMPHOMA
     Dosage: 375 MILLIGRAM/SQ. METER, 1X FOR 36 DAY(S)
     Route: 042
     Dates: start: 20180918, end: 20181023
  10. ATORVASTATIN [Concomitant]
     Active Substance: ATORVASTATIN
     Indication: HYPERCHOLESTEROLAEMIA
     Dosage: 20 MILLIGRAM, QD FOR 31 DAY(S)
     Route: 048
     Dates: start: 20181006, end: 20181105
  11. PANTOPRAZOLE [Concomitant]
     Active Substance: PANTOPRAZOLE
     Indication: PROPHYLAXIS AGAINST GASTROINTESTINAL ULCER
     Dosage: 40 MILLIGRAM, BID FOR 7 DAY(S)
     Route: 048
     Dates: start: 20181006, end: 20181012
  12. CLEMASTIN [Concomitant]
     Active Substance: CLEMASTINE
     Indication: SUPPORTIVE CARE
     Dosage: 2 MILLILITER, QD FOR 2 DAY(S)
     Route: 042
     Dates: start: 20181009, end: 20181010
  13. DEXAMETHASONE. [Concomitant]
     Active Substance: DEXAMETHASONE
     Indication: PROPHYLAXIS
     Dosage: 8 MILLIGRAM, QD FOR 1 DAY
     Route: 042
     Dates: start: 20181011, end: 20181011
  14. SMOFKABIVEN [Concomitant]
     Active Substance: AMINO ACIDS\DEXTROSE\ELECTROLYTES NOS\SOYBEAN OIL
     Dosage: 986 MILLILITER, QD (0-0-0-1)
     Route: 042
     Dates: start: 20181006, end: 20181009
  15. CYCLOPHOSPHAMIDE. [Suspect]
     Active Substance: CYCLOPHOSPHAMIDE
     Indication: B-CELL LYMPHOMA
     Dosage: 750 MILLIGRAM, 1X FOR 36 DAY(S)
     Route: 042
     Dates: start: 20180920, end: 20181025
  16. RANITIDINE. [Concomitant]
     Active Substance: RANITIDINE
     Indication: SUPPORTIVE CARE
     Dosage: 5 MILLILITER, QD FOR 1 DAY
     Route: 042
     Dates: start: 20181009, end: 20181009
  17. MESNA. [Concomitant]
     Active Substance: MESNA
     Indication: SUPPORTIVE CARE
     Dosage: 400 MILLIGRAM, QD FOR 1 DAY
     Route: 042
     Dates: start: 20181010, end: 20181010
  18. TRIMETHOPRIM SULFAMETHOXAZOLE [Concomitant]
     Active Substance: SULFAMETHOXAZOLE\TRIMETHOPRIM
     Indication: INFECTION
     Dosage: 960 MILLIGRAM, QD FOR 5 DAY(S)
     Route: 048
     Dates: start: 20181008, end: 20181012
  19. PREDNISOLONE. [Suspect]
     Active Substance: PREDNISOLONE
     Indication: B-CELL LYMPHOMA
     Dosage: 100 MILLIGRAM, 5X FOR 47 DAY(S) AND 100 MILLIGRAM QD FOR 2 DAYS
     Route: 048
     Dates: start: 20180913, end: 20181029
  20. METAMIZOL NATRIUM [Concomitant]
     Active Substance: METAMIZOLE SODIUM
     Indication: PYREXIA
     Dosage: 500 MILLIGRAM, QD FOR 32 DAY(S)
     Route: 048
     Dates: start: 20181006, end: 20181106
  21. NOVAMINSULFON [Concomitant]
     Active Substance: METAMIZOLE
     Dosage: 500 MILLIGRAM ^1XD^
     Route: 048
     Dates: start: 20181010, end: 20181011

REACTIONS (1)
  - Pyrexia [Recovered/Resolved]

NARRATIVE: CASE EVENT DATE: 20181105
